FAERS Safety Report 13945735 (Version 1)
Quarter: 2017Q3

REPORT INFORMATION
  Report Type: Spontaneous
  Country: ZA (occurrence: ZA)
  Receive Date: 20170907
  Receipt Date: 20170907
  Transmission Date: 20171128
  Serious: No
  Sender: FDA-Public Use
  Company Number: ZA-LUPIN PHARMACEUTICALS INC.-2017-01608

PATIENT
  Sex: Female

DRUGS (9)
  1. ESCITALOPRAM [Concomitant]
     Active Substance: ESCITALOPRAM OXALATE
     Indication: DEPRESSION
     Dosage: 5 MG, DAILY
     Route: 048
     Dates: start: 20170118
  2. VITAMINS NOS [Concomitant]
     Active Substance: VITAMINS
     Indication: BLOOD CHOLESTEROL INCREASED
     Dosage: 40 MG, DAILY
     Route: 048
     Dates: start: 20160926
  3. OXYBUTYNIN MYLAN [Concomitant]
     Active Substance: OXYBUTYNIN
     Indication: BLADDER DISORDER
     Dosage: 5 MG, DAILY
     Route: 048
     Dates: start: 20160926
  4. ZARTAN CO 100/25 [Concomitant]
     Active Substance: HYDROCHLOROTHIAZIDE\LOSARTAN POTASSIUM
     Indication: HYPERTENSION
     Dosage: 100/25 MG, DAILY
     Route: 048
     Dates: start: 20160926
  5. SPECTRAPAIN FORTE [Concomitant]
     Indication: PAIN
     Dosage: UNK
     Route: 048
     Dates: start: 20160926
  6. TREPIIINE [Concomitant]
     Indication: STRESS
     Dosage: 10 MG, DAILY
     Route: 048
     Dates: start: 20160926
  7. MENOGRAIN [Concomitant]
     Indication: HORMONE LEVEL ABNORMAL
     Dosage: 0.025 MG, DAILY
     Route: 048
     Dates: start: 20160926
  8. AMLODIPINE BESYLATE. [Suspect]
     Active Substance: AMLODIPINE BESYLATE
     Indication: HYPERTENSION
     Dosage: 5 MG, DAILY
     Route: 048
     Dates: start: 20170118
  9. ELTROXIN [Concomitant]
     Active Substance: LEVOTHYROXINE
     Indication: THYROID DISORDER
     Dosage: 100 MCG, DAILY
     Route: 048
     Dates: start: 20160926

REACTIONS (1)
  - Peripheral swelling [Recovered/Resolved]
